FAERS Safety Report 7543323-X (Version None)
Quarter: 2011Q2

REPORT INFORMATION
  Report Type: 
  Country: None (occurrence: None)
  Receive Date: 20110613
  Receipt Date: 20110610
  Transmission Date: 20111010
  Serious: Yes (Life-Threatening, Hospitalization)
  Sender: FDA-Public Use
  Company Number: JP-PFIZER INC-2011099244

PATIENT
  Age: 37 Year
  Sex: Female
  Weight: 51.2 kg

DRUGS (10)
  1. REMINARON [Suspect]
     Indication: DISSEMINATED INTRAVASCULAR COAGULATION
  2. BETAMETHASONE [Concomitant]
     Dosage: UNK
     Route: 041
     Dates: start: 20110507, end: 20110509
  3. VITAMEDIN INTRAVENOUS [Concomitant]
     Indication: HEPATIC FAILURE
     Dosage: UNK
     Route: 042
     Dates: start: 20110507
  4. FAMOTIDINE [Suspect]
     Indication: SUBACUTE HEPATIC FAILURE
     Dosage: UNK
     Route: 048
     Dates: start: 20110507, end: 20110507
  5. VITAMIN K2 [Suspect]
     Indication: DISSEMINATED INTRAVASCULAR COAGULATION
  6. SOLU-MEDROL [Suspect]
     Indication: STEROID THERAPY
  7. REMINARON [Suspect]
     Indication: SUBACUTE HEPATIC FAILURE
     Dosage: UNK
     Route: 042
     Dates: start: 20110507, end: 20110507
  8. VITAMIN K2 [Suspect]
     Indication: SUBACUTE HEPATIC FAILURE
     Dosage: UNK
     Route: 042
     Dates: start: 20110507, end: 20110507
  9. SOLU-MEDROL [Suspect]
     Indication: SUBACUTE HEPATIC FAILURE
     Dosage: 1 G, 1X/DAY
     Route: 042
     Dates: start: 20110507, end: 20110507
  10. BOSMIN [Concomitant]
     Dosage: UNK
     Dates: start: 20110507

REACTIONS (1)
  - ANAPHYLACTIC REACTION [None]
